FAERS Safety Report 6245612-8 (Version None)
Quarter: 2009Q2

REPORT INFORMATION
  Report Type: 
  Country: None (occurrence: None)
  Receive Date: 20090625
  Receipt Date: 20090619
  Transmission Date: 20091009
  Serious: Yes (Hospitalization)
  Sender: FDA-Public Use
  Company Number: JP-SANOFI-SYNTHELABO-A01200905201

PATIENT
  Sex: Female

DRUGS (10)
  1. NASEA [Concomitant]
     Dosage: UNK
     Route: 065
     Dates: start: 20090411, end: 20090416
  2. ADSORBIN [Concomitant]
     Dosage: UNK
     Route: 065
     Dates: start: 20090410, end: 20090424
  3. ALBUMIN TANNATE [Concomitant]
     Dosage: UNK
     Route: 065
     Dates: start: 20090410, end: 20090424
  4. DECADRON [Concomitant]
     Dosage: UNK
     Route: 065
     Dates: start: 20090328, end: 20090416
  5. MAGLAX [Concomitant]
     Dosage: UNK
     Route: 065
     Dates: start: 20090327
  6. AVASTIN [Suspect]
     Indication: RECTAL CANCER METASTATIC
     Route: 041
     Dates: start: 20090410, end: 20090410
  7. CALCIUM LEVOFOLINATE [Suspect]
     Indication: RECTAL CANCER METASTATIC
     Dosage: UNK
     Route: 041
     Dates: start: 20090410, end: 20090410
  8. FLUOROURACIL [Suspect]
     Indication: RECTAL CANCER METASTATIC
     Dosage: UNK
     Route: 041
     Dates: start: 20090401, end: 20090401
  9. ELPLAT [Suspect]
     Indication: RECTAL CANCER METASTATIC
     Dosage: UNK
     Route: 041
     Dates: start: 20090410, end: 20090410
  10. MOBIC [Concomitant]
     Dosage: UNK
     Route: 065
     Dates: start: 20090424

REACTIONS (3)
  - DECREASED APPETITE [None]
  - DIARRHOEA [None]
  - FEMALE GENITAL TRACT FISTULA [None]
